FAERS Safety Report 10664356 (Version 6)
Quarter: 2015Q3

REPORT INFORMATION
  Report Type: Report from Study
  Country: IT (occurrence: None)
  Receive Date: 20141217
  Receipt Date: 20150707
  Transmission Date: 20151125
  Serious: Yes (Hospitalization, Other)
  Sender: FDA-Public Use
  Company Number: IT2014GSK034628

PATIENT
  Age: 61 Year
  Sex: Male
  Weight: 48 kg

DRUGS (8)
  1. MARAVIROC (MARAVIROC) UNKNOWN [Suspect]
     Active Substance: MARAVIROC
     Indication: HIV INFECTION
     Dates: start: 20070802, end: 20140613
  2. EPIVIR [Concomitant]
     Active Substance: LAMIVUDINE
  3. CIALIS [Concomitant]
     Active Substance: TADALAFIL
  4. VIRAMUNE [Concomitant]
     Active Substance: NEVIRAPINE
  5. BISOPROLOL (BISOPROLOL) [Concomitant]
     Active Substance: BISOPROLOL
  6. ISENTRESS [Concomitant]
     Active Substance: RALTEGRAVIR POTASSIUM
  7. ASPIRINETTA (ACETYLSALICYLIC ACID) [Concomitant]
  8. ATORVASTATINE (ATORVASTATIN) [Concomitant]

REACTIONS (2)
  - Acute myocardial infarction [None]
  - Treatment failure [None]

NARRATIVE: CASE EVENT DATE: 20140530
